FAERS Safety Report 8762352 (Version 2)
Quarter: 2012Q4

REPORT INFORMATION
  Report Type: 
  Country: US (occurrence: US)
  Receive Date: 20120830
  Receipt Date: 20120905
  Transmission Date: 20130627
  Serious: Yes (Hospitalization)
  Sender: FDA-Public Use
  Company Number: US-PFIZER INC-2012212873

PATIENT
  Age: 82 Year
  Sex: Female
  Weight: 64.85 kg

DRUGS (5)
  1. TIKOSYN [Suspect]
     Indication: ATRIAL FIBRILLATION
     Dosage: 250 ug, 2x/day
  2. TIKOSYN [Suspect]
     Dosage: 250 mg, 2x/day
  3. PROTONIX [Suspect]
     Indication: GASTROOESOPHAGEAL REFLUX DISEASE
     Dosage: 40 mg, 1x/day
  4. PROTONIX [Suspect]
     Dosage: 40 mg, Daily
  5. ATENOLOL [Concomitant]
     Dosage: UNK

REACTIONS (4)
  - Back pain [Unknown]
  - Dysstasia [Unknown]
  - Nausea [Unknown]
  - Vomiting [Unknown]
